FAERS Safety Report 23378338 (Version 1)
Quarter: 2024Q1

REPORT INFORMATION
  Report Type: Spontaneous
  Country: FR (occurrence: FR)
  Receive Date: 20240108
  Receipt Date: 20240108
  Transmission Date: 20240410
  Serious: Yes (Hospitalization)
  Sender: FDA-Public Use
  Company Number: None

PATIENT
  Age: 56 Year
  Sex: Male
  Weight: 86.1 kg

DRUGS (4)
  1. VERAPAMIL HYDROCHLORIDE [Suspect]
     Active Substance: VERAPAMIL HYDROCHLORIDE
     Indication: Angina pectoris
     Dosage: UNK
     Route: 042
     Dates: start: 20231128
  2. VISIPAQUE [Suspect]
     Active Substance: IODIXANOL
     Indication: Angiocardiogram
     Dosage: 113 MILLILITER, 320 MG D^I/ML
     Route: 013
     Dates: start: 20231128, end: 20231128
  3. ISOSORBIDE [Suspect]
     Active Substance: ISOSORBIDE
     Indication: Angiocardiogram
     Dosage: 1 DOSAGE FORM
     Route: 022
     Dates: start: 20231128
  4. HEPARIN [Suspect]
     Active Substance: HEPARIN SODIUM
     Indication: Thrombosis prophylaxis
     Dosage: UNK
     Route: 042
     Dates: start: 20231128

REACTIONS (1)
  - Acute generalised exanthematous pustulosis [Recovering/Resolving]

NARRATIVE: CASE EVENT DATE: 20231129
